FAERS Safety Report 5902673-0 (Version None)
Quarter: 2008Q3

REPORT INFORMATION
  Report Type: 
  Country: None (occurrence: None)
  Receive Date: 20080929
  Receipt Date: 20080929
  Transmission Date: 20090109
  Serious: Yes (Hospitalization)
  Sender: FDA-Public Use
  Company Number: None

PATIENT
  Age: 95 Year
  Sex: Female
  Weight: 54.7 kg

DRUGS (9)
  1. CIPROFLOXACIN [Suspect]
     Indication: URINARY TRACT INFECTION
     Dosage: 500 MG BID ORAL
     Route: 048
     Dates: end: 20080906
  2. ASPIRIN [Concomitant]
  3. SENNA [Concomitant]
  4. ALEVE [Concomitant]
  5. LIDODERM [Concomitant]
  6. TYLENOL (CAPLET) [Concomitant]
  7. TYLENOL (CAPLET) [Concomitant]
  8. VIACTIV [Concomitant]
  9. MILK OF MAGNESIA [Concomitant]

REACTIONS (3)
  - CONFUSIONAL STATE [None]
  - DISORIENTATION [None]
  - HIP FRACTURE [None]
